FAERS Safety Report 5643121-8 (Version None)
Quarter: 2008Q1

REPORT INFORMATION
  Report Type: 
  Country: None (occurrence: None)
  Receive Date: 20080228
  Receipt Date: 20080219
  Transmission Date: 20080703
  Serious: Yes (Death, Life-Threatening)
  Sender: FDA-Public Use
  Company Number: DE-AVENTIS-200810471DE

PATIENT
  Age: 70 Year
  Sex: Female

DRUGS (53)
  1. NOVALGIN                           /00039501/ [Suspect]
     Indication: PAIN
     Route: 048
     Dates: start: 20050309, end: 20050314
  2. CLEXANE [Suspect]
     Route: 058
     Dates: start: 20050222, end: 20050307
  3. CLEXANE [Suspect]
     Route: 058
     Dates: start: 20050315, end: 20050331
  4. GLYBURIDE [Suspect]
     Indication: DIABETES MELLITUS
     Route: 048
     Dates: start: 20050305, end: 20050331
  5. EUSAPRIM                           /00086101/ [Suspect]
     Dosage: DOSE: 1-0-1
     Route: 048
     Dates: start: 20050307, end: 20050314
  6. PANTOZOL                           /01263202/ [Suspect]
     Route: 048
     Dates: start: 20050301, end: 20050317
  7. PANTOZOL                           /01263202/ [Suspect]
     Route: 042
     Dates: start: 20050318, end: 20050331
  8. SAROTEN [Suspect]
     Indication: DEPRESSION
     Dosage: DOSE: 0-0-1  0-0-1/2
     Route: 048
     Dates: start: 20040930, end: 20050318
  9. MYOCHOLINE                         /00115901/ [Suspect]
     Route: 048
     Dates: start: 20050210, end: 20050331
  10. BENURON [Suspect]
     Dosage: DOSE: 1-0-1  0-0-1
     Route: 054
     Dates: start: 20050305, end: 20050305
  11. BENURON [Suspect]
     Dosage: DOSE: 1-0-1  0-0-1
     Route: 054
     Dates: start: 20050319, end: 20050319
  12. BENURON [Suspect]
     Dosage: DOSE: 1-0-0  0-1-0
     Route: 048
     Dates: start: 20050307, end: 20050307
  13. BENURON [Suspect]
     Dosage: DOSE: 1-0-0  0-1-0
     Route: 048
     Dates: start: 20050315, end: 20050315
  14. BENURON [Suspect]
     Dosage: DOSE: 1-0-0  0-1-0
     Route: 048
     Dates: start: 20050322, end: 20050323
  15. RIOPAN                             /00141701/ [Suspect]
     Dosage: DOSE: 1-0-0  0-0-1  1-1-1
     Route: 048
     Dates: start: 20050307, end: 20050307
  16. RIOPAN                             /00141701/ [Suspect]
     Dosage: DOSE: 1-0-0  0-0-1  1-1-1
     Route: 048
     Dates: start: 20050309, end: 20050331
  17. IMODIUM [Suspect]
     Dosage: DOSE: 0-2-0
     Route: 048
     Dates: start: 20050308, end: 20050308
  18. IMODIUM [Suspect]
     Dosage: DOSE: 0-2-0
     Route: 048
     Dates: start: 20050315, end: 20050315
  19. IMODIUM [Suspect]
     Dosage: DOSE: 0-2-0
     Route: 048
     Dates: start: 20050325, end: 20050326
  20. KONAKION [Suspect]
     Dosage: DOSE: 5-0-0  10-0-0
     Route: 048
     Dates: start: 20050309, end: 20050310
  21. KONAKION [Suspect]
     Dosage: DOSE: 5-0-0  10-0-0
     Route: 048
     Dates: start: 20050314, end: 20050316
  22. PASPERTIN [Suspect]
     Indication: NAUSEA
     Route: 048
     Dates: start: 20050310, end: 20050318
  23. ROCEPHIN                           /00672201/ [Suspect]
     Route: 042
     Dates: start: 20050322, end: 20050325
  24. MANINIL [Concomitant]
     Indication: DIABETES MELLITUS
     Route: 048
     Dates: start: 20050211, end: 20050303
  25. SORTIS                             /01326101/ [Concomitant]
     Dosage: DOSE: 1-0-0
     Route: 048
     Dates: start: 20040930, end: 20050303
  26. VOLTAREN [Concomitant]
     Indication: PAIN
     Dosage: DOSE: 1-0-1
     Route: 048
     Dates: start: 20050214, end: 20050309
  27. HAES [Concomitant]
     Dosage: DOSE: 500ML 200ML
     Route: 041
     Dates: start: 20050304, end: 20050305
  28. MARCUMAR [Concomitant]
     Indication: THROMBOSIS
     Dosage: DOSE: ACCORDING TO INR
     Route: 048
     Dates: start: 20050305, end: 20050308
  29. CALCIUM-SANDOZ                     /00177201/ [Concomitant]
     Dosage: DOSE: 2-0-0  1-0-1
     Route: 048
     Dates: start: 20050308, end: 20050309
  30. CALCIUM-SANDOZ                     /00177201/ [Concomitant]
     Dosage: DOSE: 2-0-0  1-0-1
     Route: 048
     Dates: start: 20050324, end: 20050331
  31. CANDIO-HERMAL [Concomitant]
     Dosage: DOSE: 1-0-0
     Route: 061
     Dates: start: 20050317, end: 20050317
  32. CANDIO-HERMAL [Concomitant]
     Dosage: DOSE: 1-0-0; FREQUENCY: IRREGULAR
     Route: 061
     Dates: start: 20050318, end: 20050331
  33. SODIUM CHLORIDE [Concomitant]
     Route: 041
     Dates: start: 20050318, end: 20050331
  34. ELEKTROLYT                         /01090101/ [Concomitant]
     Dosage: DOSE: 500ML - 1500ML
     Route: 041
     Dates: start: 20050318, end: 20050324
  35. ELEKTROLYT                         /01090101/ [Concomitant]
     Dosage: DOSE: 500ML - 1500ML
     Route: 041
     Dates: start: 20050329, end: 20050331
  36. PASPERTIN [Concomitant]
     Dosage: DOSE: 1-0-0 AMP.
     Route: 042
     Dates: start: 20050322, end: 20050322
  37. MULTIBIONTA                        /00111701/ [Concomitant]
     Dosage: DOSE: 1-0-0 AMP.
     Route: 042
     Dates: start: 20050322, end: 20050322
  38. URBASON [Concomitant]
     Dosage: DOSE: 250MG 96MG
     Route: 042
     Dates: start: 20050322, end: 20050329
  39. URBASON [Concomitant]
     Dosage: DOSE: 250MG 96MG
     Route: 042
     Dates: start: 20050331, end: 20050331
  40. XYLIT [Concomitant]
     Dosage: DOSE QUANTITY: 5; DOSE UNIT: MILLILITRE PER HOUR
     Route: 041
     Dates: start: 20050323, end: 20050323
  41. CALCIUM GLUCONATE [Concomitant]
     Dosage: DOSE: 1-0-0 AMP.
     Route: 042
     Dates: start: 20050323, end: 20050323
  42. AQUA AD INJECT. [Concomitant]
     Route: 042
     Dates: start: 20050323, end: 20050323
  43. TPN [Concomitant]
     Route: 041
     Dates: start: 20050323, end: 20050324
  44. TPN [Concomitant]
     Route: 041
     Dates: start: 20050331, end: 20050331
  45. ACTRAPID [Concomitant]
     Indication: DIABETES MELLITUS
     Dosage: DOSE: ACCORDING TO BLOOD GLUCOSE
     Route: 058
     Dates: start: 20050324, end: 20050329
  46. THIOCTACID [Concomitant]
     Indication: POLYNEUROPATHY
     Route: 042
     Dates: start: 20050325, end: 20050327
  47. CORANGIN NITROSPRAY [Concomitant]
     Dosage: DOSE: 1 PUFF
     Route: 055
     Dates: start: 20050327, end: 20050327
  48. FENISTIL [Concomitant]
     Dosage: DOSE: 0-0-2  1-1-1
     Route: 048
     Dates: start: 20050327, end: 20050329
  49. FENISTIL [Concomitant]
     Dosage: DOSE: 0-0-1 AMP.
     Route: 042
     Dates: start: 20050328, end: 20050328
  50. XUSAL [Concomitant]
     Indication: PRURITUS
     Dosage: DOSE: 0-0-1  1-0-1
     Route: 048
     Dates: start: 20050329, end: 20050331
  51. DECORTIN [Concomitant]
     Route: 048
     Dates: start: 20050330, end: 20050331
  52. NOVALGIN                           /00039501/ [Concomitant]
     Route: 042
     Dates: start: 20050331, end: 20050331
  53. AVELOX [Concomitant]
     Route: 042
     Dates: start: 20050331, end: 20050331

REACTIONS (4)
  - BLISTER [None]
  - NIKOLSKY'S SIGN [None]
  - PAIN OF SKIN [None]
  - TOXIC EPIDERMAL NECROLYSIS [None]
